FAERS Safety Report 4773108-9 (Version None)
Quarter: 2005Q3

REPORT INFORMATION
  Report Type: 
  Country: None (occurrence: None)
  Receive Date: 20050916
  Receipt Date: 20050907
  Transmission Date: 20060218
  Serious: Yes (Hospitalization)
  Sender: FDA-Public Use
  Company Number: 8011169

PATIENT
  Age: 59 Year
  Sex: Female
  Weight: 55 kg

DRUGS (9)
  1. KEPPRA [Suspect]
     Indication: CONVULSION PROPHYLAXIS
     Dosage: 500 MG /D PO
     Route: 048
     Dates: start: 20050101, end: 20050601
  2. KEPPRA [Suspect]
     Indication: CONVULSION PROPHYLAXIS
     Dosage: 2000 MG /D PO
     Route: 048
     Dates: start: 20050601, end: 20050701
  3. KEPPRA [Suspect]
     Indication: CONVULSION PROPHYLAXIS
     Dosage: 1500 MG /D PO
     Route: 048
     Dates: start: 20050701
  4. KEPPRA [Suspect]
     Indication: CONVULSION PROPHYLAXIS
     Dosage: 1250 MG PO
     Route: 048
     Dates: start: 20050831
  5. CHEMOTHERAPY [Concomitant]
  6. PROVIGIL [Concomitant]
  7. PAXIL [Concomitant]
  8. BACTRIM [Concomitant]
  9. DILAUDID [Concomitant]

REACTIONS (2)
  - AMNESIA [None]
  - BLOOD CALCIUM INCREASED [None]
